FAERS Safety Report 8073956-6 (Version None)
Quarter: 2012Q1

REPORT INFORMATION
  Report Type: 
  Country: None (occurrence: None)
  Receive Date: 20120119
  Receipt Date: 20120105
  Transmission Date: 20120608
  Serious: Yes (Hospitalization)
  Sender: FDA-Public Use
  Company Number: 1000011010

PATIENT
  Age: 50 Year
  Sex: Female
  Weight: 70 kg

DRUGS (13)
  1. DEPAKOTE (VALPROATE SEMISODIUM) (TABLETS) (VALPROATE SEMISODIUM) [Concomitant]
  2. CITALOPRAM (CITALOPRAM HYDROBROMIDE) (TABLETS) (CITALOPRAM HYDROBROMID [Concomitant]
  3. ESCITALOPRAM OXALATE [Suspect]
     Indication: DEPRESSION
     Dosage: 20 MG (20 MG,1 IN 1 D),ORAL
     Route: 048
     Dates: start: 20090119, end: 20090124
  4. CEFUROXIME [Concomitant]
  5. TOPALGIC (TRAMADOL HYDROCHLORIDE) (TABLETS) (TRAMADOL HYDROCHLORIDE) [Concomitant]
  6. SERESTA (OXAZEPAM) (TABLETS) (OXAZEPAM) [Concomitant]
  7. HAVLANE (LOPRAZOLAM MESILATE) (TABLETS) (LOPRAZOLAM MESILATE) [Concomitant]
  8. EUPHON (CODEINE, ERYSIMUM) (SYRUP) (CODEINE, ERYSIMUM) [Concomitant]
  9. PARACETAMOL (PARACETAMOL) (CAPSULES) (PARACETAMOL) [Concomitant]
  10. RELPAX [Suspect]
     Indication: MIGRAINE
     Dosage: (40 MG,AS REQUIRED),ORAL
     Route: 048
     Dates: start: 20081211, end: 20090124
  11. FLURBIPROFEN [Suspect]
     Indication: PAIN
     Dosage: (200 MG,5 DAYS PER MONTH),ORAL
     Route: 048
     Dates: start: 20081211, end: 20090124
  12. DERINOX (PREDNISOLONE, NAPHAZOLINE) [Suspect]
     Indication: NASAL CONGESTION
     Dosage: 3 DOSAGE FORMS (1 DOSAGE FORMS,3 IN 1 D),NASAL
     Route: 045
     Dates: start: 20090119, end: 20090124
  13. PROPRANOLOL (PROPRANOLOL) (CAPSULES) (PROPRANOLOL) [Concomitant]

REACTIONS (2)
  - HEMIANOPIA HOMONYMOUS [None]
  - CEREBROVASCULAR ACCIDENT [None]
